FAERS Safety Report 7042254-1 (Version None)
Quarter: 2010Q3

REPORT INFORMATION
  Report Type: 
  Country: None (occurrence: None)
  Receive Date: 20100929
  Receipt Date: 20100714
  Transmission Date: 20110219
  Serious: No
  Sender: FDA-Public Use
  Company Number: US-WYE-H16847310

PATIENT
  Age: 53 Year
  Sex: Male
  Weight: 81.72 kg

DRUGS (4)
  1. PRISTIQ [Suspect]
     Indication: ANXIETY
     Dosage: (TOOK HALF OF 50 MG TABLET) (50 MG 1X PER 1 DAY) (OFF AND ON THERAPY TAKING 1/4 OF A TABLET TWICE DA
     Route: 048
     Dates: start: 20090101, end: 20090101
  2. PRISTIQ [Suspect]
     Indication: ANXIETY
     Dosage: (TOOK HALF OF 50 MG TABLET) (50 MG 1X PER 1 DAY) (OFF AND ON THERAPY TAKING 1/4 OF A TABLET TWICE DA
     Route: 048
     Dates: start: 20090101
  3. EFFEXOR [Suspect]
     Indication: ANXIETY
     Dosage: (75 MG 1X PER 1 DAY) (75 MG 1X PER 1 DAY) (150 MG 1X PER 1 DAY) (75 MG 1X PER 1 DAY) (37.5 MG 1X PER
     Route: 048
  4. ADDERALL (AMFETAMINE ASPARATE/AMFETAMINE SULFATE/DEXAMFETAMINE SACCHAR [Concomitant]

REACTIONS (7)
  - ANXIETY [None]
  - APATHY [None]
  - FATIGUE [None]
  - FEELING ABNORMAL [None]
  - LAZINESS [None]
  - SEXUAL DYSFUNCTION [None]
  - WRONG TECHNIQUE IN DRUG USAGE PROCESS [None]
